FAERS Safety Report 9696458 (Version 1)
Quarter: 2013Q4

REPORT INFORMATION
  Report Type: Spontaneous
  Country: GB (occurrence: GB)
  Receive Date: 20131119
  Receipt Date: 20131119
  Transmission Date: 20140711
  Serious: Yes (Other)
  Sender: FDA-Public Use
  Company Number: GB-PFIZER INC-2013329282

PATIENT
  Age: 58 Year
  Sex: Female

DRUGS (1)
  1. GENOTROPIN [Suspect]
     Indication: HYPOPITUITARISM
     Dosage: 0.25 MG, PER DAY
     Dates: start: 1993

REACTIONS (7)
  - Cerebrovascular accident [Unknown]
  - Post viral fatigue syndrome [Unknown]
  - Chronic fatigue syndrome [Unknown]
  - Dyspnoea [Unknown]
  - Anxiety [Unknown]
  - Asthenia [Unknown]
  - General physical health deterioration [Unknown]
